FAERS Safety Report 4305695-9 (Version None)
Quarter: 2004Q1

REPORT INFORMATION
  Report Type: 
  Country: None (occurrence: None)
  Receive Date: 20040223
  Receipt Date: 20031103
  Transmission Date: 20041129
  Serious: No
  Sender: FDA-Public Use
  Company Number: SU-2003-001905

PATIENT
  Sex: Male

DRUGS (7)
  1. BENICAR [Suspect]
     Indication: HYPERTENSION
     Dosage: MG QD PO
     Route: 048
     Dates: start: 20030101
  2. NEURONTIN [Concomitant]
  3. VALIUM [Concomitant]
  4. AMBIEN [Concomitant]
  5. DURAGESIC [Concomitant]
  6. GLUCOPHAGE [Concomitant]
  7. POTASSIUM [Concomitant]

REACTIONS (4)
  - ASTHENIA [None]
  - FATIGUE [None]
  - LOSS OF CONSCIOUSNESS [None]
  - PHOTOPHOBIA [None]
